FAERS Safety Report 11796264 (Version 1)
Quarter: 2015Q4

REPORT INFORMATION
  Report Type: Spontaneous
  Country: US (occurrence: None)
  Receive Date: 20151202
  Receipt Date: 20151202
  Transmission Date: 20160305
  Serious: Yes (Hospitalization)
  Sender: FDA-Public Use
  Company Number: None

PATIENT
  Age: 59 Year
  Sex: Male

DRUGS (1)
  1. VANCOMYCIN [Suspect]
     Active Substance: VANCOMYCIN
     Indication: VASCULAR OPERATION
     Route: 042
     Dates: start: 20150615, end: 20150615

REACTIONS (2)
  - Respiratory arrest [None]
  - Shock [None]

NARRATIVE: CASE EVENT DATE: 20150820
